FAERS Safety Report 5579932-7 (Version None)
Quarter: 2007Q4

REPORT INFORMATION
  Report Type: 
  Country: None (occurrence: None)
  Receive Date: 20071228
  Receipt Date: 20071221
  Transmission Date: 20080405
  Serious: Yes (Death)
  Sender: FDA-Public Use
  Company Number: MEDI-0006343

PATIENT

DRUGS (1)
  1. SYNAGIS [Suspect]

REACTIONS (1)
  - MALAISE [None]
